FAERS Safety Report 9230737 (Version 1)
Quarter: 2013Q1

REPORT INFORMATION
  Report Type: Spontaneous
  Country: US (occurrence: None)
  Receive Date: 20121031
  Receipt Date: 20121031
  Transmission Date: 20140127
  Serious: No
  Sender: FDA-Public Use
  Company Number: PHEH2012US013446

PATIENT
  Age: 70 Year
  Sex: Female
  Weight: 96.1 kg

DRUGS (10)
  1. GILENYA [Suspect]
     Indication: MULTIPLE SCLEROSIS
     Route: 048
     Dates: start: 20120315
  2. ZOCOR ^DIECKMANN^ (SIMVASTATIN) [Concomitant]
  3. LASIX (FUROSEMIDE) [Concomitant]
  4. INDERAL ^IMPERIAL CHEMICAL INDUSTRIES^ (PROPRANOLOL HYDOCHLORIDE) [Concomitant]
  5. MULTIVITAMINS (ASCORBIC ACID, EROGCALCIFEROL, FOLIC ACID, NICOTINAMIDE, PANTHENOL, REINOL, RIBOFLAVIN, HIAMINE HYDROCHLORIDE) [Concomitant]
  6. PROTEIN SUPPLEMENTS (NO INGREDIENTS/SUBSTANCES) [Concomitant]
  7. GLUCOSAMINE (GLUCOSAMINE) [Concomitant]
  8. POTASSIUM (POTASSIUM) [Concomitant]
  9. TYLENOL (PARACETAMOL) [Concomitant]
  10. PROBIOTICS (NO INGREDIENTS/SUBSTANCES) [Concomitant]

REACTIONS (3)
  - Fatigue [None]
  - Anxiety [None]
  - Dyspnoea [None]
